FAERS Safety Report 13115138 (Version 2)
Quarter: 2017Q1

REPORT INFORMATION
  Report Type: Spontaneous
  Country: PT (occurrence: FR)
  Receive Date: 20170113
  Receipt Date: 20170127
  Transmission Date: 20170428
  Serious: Yes (Hospitalization, Other)
  Sender: FDA-Public Use
  Company Number: PT-SUNOVION-2017SUN000094

PATIENT

DRUGS (12)
  1. PLAVIX [Concomitant]
     Active Substance: CLOPIDOGREL BISULFATE
  2. LANTUS [Concomitant]
     Active Substance: INSULIN GLARGINE
  3. DEPAKINE CHRONO [Concomitant]
     Active Substance: VALPROATE SODIUM
  4. METFORMIN [Concomitant]
     Active Substance: METFORMIN HYDROCHLORIDE
  5. ATENOLOL. [Concomitant]
     Active Substance: ATENOLOL
  6. CORVASAL                           /00547101/ [Concomitant]
     Active Substance: MOLSIDOMINE
  7. ZEBINIX [Suspect]
     Active Substance: ESLICARBAZEPINE ACETATE
     Indication: EPILEPSY
     Dosage: UNKNOWN
     Route: 048
     Dates: start: 20161123, end: 20161206
  8. ATORVASTATIN [Concomitant]
     Active Substance: ATORVASTATIN
  9. KARDEGIC [Concomitant]
     Active Substance: ASPIRIN LYSINE
  10. PROCORALAN [Concomitant]
     Active Substance: IVABRADINE
  11. INEXIUM                            /01479303/ [Concomitant]
     Active Substance: ESOMEPRAZOLE
  12. EXFORGE [Concomitant]
     Active Substance: AMLODIPINE BESYLATE\VALSARTAN

REACTIONS (5)
  - Glomerular filtration rate decreased [Unknown]
  - Muscular weakness [Recovering/Resolving]
  - Headache [Recovering/Resolving]
  - Malaise [Recovering/Resolving]
  - Hyponatraemia [Recovering/Resolving]

NARRATIVE: CASE EVENT DATE: 20161206
